FAERS Safety Report 8846901 (Version 4)
Quarter: 2013Q3

REPORT INFORMATION
  Report Type: Spontaneous
  Country: US (occurrence: US)
  Receive Date: 20121018
  Receipt Date: 20130814
  Transmission Date: 20140515
  Serious: Yes (Hospitalization, Other)
  Sender: FDA-Public Use
  Company Number: US-ASTRAZENECA-2010SE31602

PATIENT
  Age: 56 Year
  Sex: Female
  Weight: 61.7 kg

DRUGS (13)
  1. RHINOCORT AQUA [Suspect]
     Route: 045
  2. SYMBICORT PMDI [Suspect]
     Indication: CHRONIC OBSTRUCTIVE PULMONARY DISEASE
     Dosage: TWO PUFFS TWO TIMES A DAY
     Route: 055
     Dates: start: 2011
  3. NEXIUM [Suspect]
     Indication: GASTROOESOPHAGEAL REFLUX DISEASE
     Route: 048
     Dates: start: 1990
  4. METFORMIN [Concomitant]
     Indication: DIABETES MELLITUS
     Route: 048
     Dates: start: 2008
  5. ULTRAM [Concomitant]
     Indication: PAIN
     Route: 048
     Dates: start: 2009
  6. TYLENOL 3 [Concomitant]
     Indication: PAIN
     Route: 048
     Dates: start: 2002
  7. PHENERGEN [Concomitant]
     Indication: NAUSEA
     Route: 048
     Dates: start: 1996
  8. TRIAZINDINE [Concomitant]
     Indication: MUSCLE SPASMS
     Route: 048
     Dates: start: 2012
  9. VALIUM [Concomitant]
     Indication: PANIC ATTACK
     Dosage: HALF TO ONE PRN
     Route: 048
     Dates: start: 2009
  10. ALBUTEROL SULFATE [Concomitant]
     Indication: ASTHMA
     Dosage: 3.0MG NEB Q6H
     Route: 055
     Dates: start: 201307
  11. ALBUTEROL SULFATE [Concomitant]
     Indication: CHRONIC OBSTRUCTIVE PULMONARY DISEASE
     Dosage: 3.0MG NEB Q6H
     Route: 055
     Dates: start: 201307
  12. IPRAPROPIUM BROMIDE [Concomitant]
     Indication: ASTHMA
     Dosage: 0.5 MG NEB Q6H
     Route: 055
     Dates: start: 201307
  13. IPRAPROPIUM BROMIDE [Concomitant]
     Indication: CHRONIC OBSTRUCTIVE PULMONARY DISEASE
     Dosage: 0.5 MG NEB Q6H
     Route: 055
     Dates: start: 201307

REACTIONS (13)
  - Renal failure [Unknown]
  - Myocardial infarction [Unknown]
  - Kidney infection [Unknown]
  - Foot fracture [Unknown]
  - Respiratory disorder [Unknown]
  - Eye disorder [Unknown]
  - Road traffic accident [Unknown]
  - Chest discomfort [Unknown]
  - Dyspepsia [Unknown]
  - Dyspnoea [Unknown]
  - Infection [Unknown]
  - Hypertension [Unknown]
  - Drug dose omission [Unknown]
